FAERS Safety Report 5682663-6 (Version None)
Quarter: 2008Q1

REPORT INFORMATION
  Report Type: 
  Country: None (occurrence: None)
  Receive Date: 20080327
  Receipt Date: 20080212
  Transmission Date: 20080703
  Serious: Yes (Other)
  Sender: FDA-Public Use
  Company Number: US-BRISTOL-MYERS SQUIBB COMPANY-14073126

PATIENT
  Sex: Female

DRUGS (3)
  1. ORENCIA [Suspect]
     Indication: RHEUMATOID ARTHRITIS
     Dosage: FIRST INFUSION
     Dates: start: 20080208
  2. CELEBREX [Concomitant]
  3. PREDNISONE TAB [Concomitant]

REACTIONS (2)
  - RASH [None]
  - URTICARIA [None]
